FAERS Safety Report 5228256-6 (Version None)
Quarter: 2007Q1

REPORT INFORMATION
  Report Type: 
  Country: None (occurrence: None)
  Receive Date: 20070205
  Receipt Date: 20070126
  Transmission Date: 20070707
  Serious: Yes (Death)
  Sender: FDA-Public Use
  Company Number: MX-ELI_LILLY_AND_COMPANY-MX200701005159

PATIENT
  Age: 19 Year
  Sex: Male
  Weight: 80 kg

DRUGS (1)
  1. OLANZAPINE + FLUOXETINE HCL [Suspect]
     Indication: PSYCHOTIC DISORDER
     Dosage: 6/50
     Route: 048
     Dates: start: 20060917

REACTIONS (2)
  - COMPLETED SUICIDE [None]
  - IRRITABILITY [None]
